FAERS Safety Report 16894691 (Version 1)
Quarter: 2019Q4

REPORT INFORMATION
  Report Type: Spontaneous
  Country: US (occurrence: US)
  Receive Date: 20191008
  Receipt Date: 20191008
  Transmission Date: 20200122
  Serious: Yes (Other)
  Sender: FDA-Public Use
  Company Number: US-INDIVIOR LIMITED-INDV-118779-2019

PATIENT
  Age: 29 Year
  Sex: Male

DRUGS (3)
  1. UNSPECIFIED GENERIC BUPRENORPHINE/NALOXONE  FILM [Suspect]
     Active Substance: BUPRENORPHINE HYDROCHLORIDE\NALOXONE HYDROCHLORIDE
     Indication: DRUG DEPENDENCE
     Dosage: 4MG,QD (CUTTING)
     Route: 065
     Dates: start: 2019
  2. SUBOXONE [Suspect]
     Active Substance: BUPRENORPHINE HYDROCHLORIDE\NALOXONE HYDROCHLORIDE
     Dosage: 24MG, QD
     Route: 060
     Dates: end: 2019
  3. SUBOXONE [Suspect]
     Active Substance: BUPRENORPHINE HYDROCHLORIDE\NALOXONE HYDROCHLORIDE
     Indication: DRUG DEPENDENCE
     Dosage: 20MG, QD
     Route: 060
     Dates: start: 20140305

REACTIONS (4)
  - Angioedema [Recovered/Resolved]
  - Oedema peripheral [Recovered/Resolved]
  - Wrong technique in product usage process [Not Recovered/Not Resolved]
  - Drug withdrawal syndrome [Recovered/Resolved]

NARRATIVE: CASE EVENT DATE: 20140305
